FAERS Safety Report 7462887-8 (Version None)
Quarter: 2011Q2

REPORT INFORMATION
  Report Type: 
  Country: None (occurrence: None)
  Receive Date: 20110506
  Receipt Date: 20110325
  Transmission Date: 20111010
  Serious: Yes (Hospitalization, Other)
  Sender: FDA-Public Use
  Company Number: US-BAYER-201015106NA

PATIENT
  Age: 19 Year
  Sex: Female
  Weight: 66 kg

DRUGS (9)
  1. DESOGESTREL AND ETHINYL ESTRADIOL [Concomitant]
  2. LORTAB [Concomitant]
     Dosage: 5 MG, UNK
     Route: 048
  3. ALBUTEROL [Concomitant]
  4. XANAX [Concomitant]
     Indication: ANXIETY
  5. YAZ [Suspect]
     Indication: PREMENSTRUAL SYNDROME
     Dosage: AS USED DOSE: UNK
     Route: 048
     Dates: start: 20051101, end: 20070315
  6. ZOFRAN [Concomitant]
     Dosage: 4 MG, UNK
     Route: 048
  7. YAZ [Suspect]
     Indication: ACNE
     Dosage: AS USED DOSE: UNK
     Route: 048
  8. ECLIPSE [Concomitant]
  9. DESOGESTREL AND ETHINYL ESTRADIOL [Concomitant]

REACTIONS (5)
  - OEDEMA PERIPHERAL [None]
  - CHOLECYSTITIS CHRONIC [None]
  - BILIARY DYSKINESIA [None]
  - PAIN IN EXTREMITY [None]
  - DEEP VEIN THROMBOSIS [None]
